FAERS Safety Report 6996791-6 (Version None)
Quarter: 2010Q3

REPORT INFORMATION
  Report Type: 
  Country: None (occurrence: None)
  Receive Date: 20100918
  Receipt Date: 20090709
  Transmission Date: 20110219
  Serious: No
  Sender: FDA-Public Use
  Company Number: US-WYE-H10097209

PATIENT
  Sex: Male
  Weight: 75.36 kg

DRUGS (3)
  1. EFFEXOR XR [Suspect]
     Indication: DEPRESSION
     Route: 048
     Dates: start: 20060101
  2. HYDROCHLOROTHIAZIDE [Concomitant]
  3. LOPRESSOR [Concomitant]

REACTIONS (1)
  - DRUG SCREEN POSITIVE [None]
